FAERS Safety Report 7988716-1 (Version None)
Quarter: 2011Q4

REPORT INFORMATION
  Report Type: 
  Country: None (occurrence: None)
  Receive Date: 20111218
  Receipt Date: 20111205
  Transmission Date: 20120403
  Serious: Yes (Hospitalization)
  Sender: FDA-Public Use
  Company Number: HU-MYLANLABS-2011S1025755

PATIENT
  Age: 29 Year
  Sex: Male

DRUGS (8)
  1. LAMOTRIGINE [Suspect]
     Indication: EPILEPSY
     Route: 048
  2. CEFTRIAXONE [Suspect]
     Indication: PRODUCT USED FOR UNKNOWN INDICATION
     Route: 048
     Dates: start: 20070701
  3. METHYLPREDNISOLONE [Suspect]
     Indication: PRODUCT USED FOR UNKNOWN INDICATION
  4. IMMUNE GLOBULIN INTRAVENOUS (HUMAN) [Suspect]
     Indication: PRODUCT USED FOR UNKNOWN INDICATION
     Route: 042
  5. VALPROATE SODIUM [Suspect]
     Indication: EPILEPSY
     Route: 048
  6. PENICILLIN [Suspect]
     Indication: PRODUCT USED FOR UNKNOWN INDICATION
     Route: 048
     Dates: start: 20070701
  7. PREDNISOLONE [Suspect]
     Route: 048
  8. PREDNISOLONE [Suspect]
     Indication: PRODUCT USED FOR UNKNOWN INDICATION
     Route: 048

REACTIONS (13)
  - CONVULSION [None]
  - BALANCE DISORDER [None]
  - CONFUSIONAL STATE [None]
  - HALLUCINATION [None]
  - NAUSEA [None]
  - MENINGITIS TUBERCULOUS [None]
  - PYREXIA [None]
  - DIPLOPIA [None]
  - MEMORY IMPAIRMENT [None]
  - VOMITING [None]
  - DELUSION [None]
  - IMMUNODEFICIENCY COMMON VARIABLE [None]
  - SARCOIDOSIS [None]
